FAERS Safety Report 13254338 (Version 3)
Quarter: 2017Q1

REPORT INFORMATION
  Report Type: Report from Study
  Country: CO (occurrence: CO)
  Receive Date: 20170221
  Receipt Date: 20170311
  Transmission Date: 20170428
  Serious: Yes (Other)
  Sender: FDA-Public Use
  Company Number: CO-AMGEN-COLSL2017025053

PATIENT
  Age: 61 Year
  Sex: Male
  Weight: 58 kg

DRUGS (1)
  1. ARANESP [Suspect]
     Active Substance: DARBEPOETIN ALFA
     Indication: NEPHROGENIC ANAEMIA
     Dosage: 150 MUG, 2 TIMES/WK
     Route: 058
     Dates: start: 20170116

REACTIONS (3)
  - Hypertensive crisis [Recovered/Resolved]
  - Blood creatinine increased [Recovered/Resolved]
  - Pterygium [Unknown]

NARRATIVE: CASE EVENT DATE: 20170117
